FAERS Safety Report 19894267 (Version 1)
Quarter: 2021Q3

REPORT INFORMATION
  Report Type: Spontaneous
  Country: US (occurrence: US)
  Receive Date: 20210928
  Receipt Date: 20210928
  Transmission Date: 20211014
  Serious: No
  Sender: FDA-Public Use
  Company Number: None

PATIENT
  Sex: Female

DRUGS (20)
  1. DEXAMETHASON [Concomitant]
     Active Substance: DEXAMETHASONE
  2. ESTRADIOL. [Concomitant]
     Active Substance: ESTRADIOL
  3. LISINOPRIL. [Concomitant]
     Active Substance: LISINOPRIL
  4. ATENOL [Concomitant]
     Active Substance: ATENOLOL
  5. LIDOCAINE. [Concomitant]
     Active Substance: LIDOCAINE
  6. SMZ/TMP [Concomitant]
     Active Substance: SULFAMETHOXAZOLE\TRIMETHOPRIM
  7. SPIVA [Concomitant]
     Active Substance: PROPOFOL
  8. METOPROL SUC [Concomitant]
  9. TORSEMIDE. [Concomitant]
     Active Substance: TORSEMIDE
  10. HYDROCO/APAP [Concomitant]
     Active Substance: ACETAMINOPHEN\HYDROCODONE
  11. TERCONAZOLE. [Concomitant]
     Active Substance: TERCONAZOLE
  12. REPATHA [Suspect]
     Active Substance: EVOLOCUMAB
     Indication: PRURITUS
     Dosage: ?          OTHER FREQUENCY:EVERY OTHER WEEK;?
     Route: 058
     Dates: start: 20191204
  13. ALLOPURINOL. [Concomitant]
     Active Substance: ALLOPURINOL
  14. DULOXETINE. [Concomitant]
     Active Substance: DULOXETINE
  15. ALLEGRA [Concomitant]
     Active Substance: FEXOFENADINE HYDROCHLORIDE
  16. ELIQUIS [Concomitant]
     Active Substance: APIXABAN
  17. FUROSEMIDE. [Concomitant]
     Active Substance: FUROSEMIDE
  18. ACYCLOVIR. [Concomitant]
     Active Substance: ACYCLOVIR
  19. OMEPRAZOLE. [Concomitant]
     Active Substance: OMEPRAZOLE
  20. POT CHLORIDE [Concomitant]
     Active Substance: POTASSIUM CHLORIDE

REACTIONS (1)
  - Therapy interrupted [None]
